FAERS Safety Report 17794691 (Version 4)
Quarter: 2020Q2

REPORT INFORMATION
  Report Type: Report from Study
  Country: US (occurrence: US)
  Receive Date: 20200515
  Receipt Date: 20200629
  Transmission Date: 20200714
  Serious: Yes (Hospitalization)
  Sender: FDA-Public Use
  Company Number: US-ACTELION-A-NJ2019-195337

PATIENT
  Sex: Male
  Weight: 66.67 kg

DRUGS (7)
  1. VELETRI [Suspect]
     Active Substance: EPOPROSTENOL
     Dosage: 19 NG/KG, PER MIN
     Route: 042
  2. XARELTO [Concomitant]
     Active Substance: RIVAROXABAN
  3. VELETRI [Suspect]
     Active Substance: EPOPROSTENOL
     Indication: PULMONARY ARTERIAL HYPERTENSION
     Dosage: 49 NG/KG, PER MIN
     Route: 042
  4. VELETRI [Suspect]
     Active Substance: EPOPROSTENOL
     Dosage: 24 NG/KG, PER MIN
     Route: 042
  5. OPSUMIT [Suspect]
     Active Substance: MACITENTAN
     Indication: PULMONARY ARTERIAL HYPERTENSION
     Dosage: 10 MG, QD
     Route: 048
     Dates: start: 20171006
  6. VELETRI [Suspect]
     Active Substance: EPOPROSTENOL
     Dosage: 53 NG/KG, PER MIN
     Route: 042
  7. ADEMPAS [Concomitant]
     Active Substance: RIOCIGUAT

REACTIONS (8)
  - Catheter site thrombosis [Recovered/Resolved]
  - Dyspnoea exertional [Unknown]
  - Device alarm issue [Recovered/Resolved]
  - Device occlusion [Recovered/Resolved]
  - Pain [Unknown]
  - Fluid retention [Unknown]
  - Fatigue [Unknown]
  - Oxygen saturation decreased [Unknown]
